FAERS Safety Report 8128115-5 (Version None)
Quarter: 2011Q4

REPORT INFORMATION
  Report Type: 
  Country: None (occurrence: None)
  Receive Date: 20111230
  Receipt Date: 20111031
  Transmission Date: 20120403
  Serious: Yes (Other)
  Sender: FDA-Public Use
  Company Number: 273943USA

PATIENT
  Sex: Female

DRUGS (6)
  1. IRON [Concomitant]
  2. PANTOPRAZOLE [Concomitant]
  3. OSTEOBIFLEX [Concomitant]
  4. LEKOVIT CA [Concomitant]
  5. VENLAFAXINE HYDROCHLORIDE [Suspect]
     Dates: start: 20110101, end: 20110501
  6. MULTI-VITAMIN [Concomitant]

REACTIONS (7)
  - ORAL DISCOMFORT [None]
  - ANAPHYLACTOID REACTION [None]
  - DYSGEUSIA [None]
  - MOOD SWINGS [None]
  - FEELING ABNORMAL [None]
  - THROAT IRRITATION [None]
  - WITHDRAWAL SYNDROME [None]
